FAERS Safety Report 7078850-5 (Version None)
Quarter: 2010Q4

REPORT INFORMATION
  Report Type: 
  Country: None (occurrence: None)
  Receive Date: 20101102
  Receipt Date: 20101022
  Transmission Date: 20110411
  Serious: Yes (Death)
  Sender: FDA-Public Use
  Company Number: CA-AMGEN-CANSP2010001127

PATIENT

DRUGS (1)
  1. ENBREL [Suspect]
     Dosage: UNK

REACTIONS (1)
  - DEATH [None]
